FAERS Safety Report 16957564 (Version 2)
Quarter: 2019Q4

REPORT INFORMATION
  Report Type: Report from Study
  Country: US (occurrence: US)
  Receive Date: 20191024
  Receipt Date: 20191213
  Transmission Date: 20200122
  Serious: Yes (Hospitalization)
  Sender: FDA-Public Use
  Company Number: US-PFIZER INC-2019455512

PATIENT
  Age: 12 Year
  Sex: Female
  Weight: 40.1 kg

DRUGS (7)
  1. PEGASPARGASE [Suspect]
     Active Substance: PEGASPARGASE
     Indication: ACUTE LYMPHOCYTIC LEUKAEMIA
     Dosage: 3247.5 IU/M2, DAY 4 DELAYED INTENSIFICATION
     Route: 042
     Dates: start: 20190920
  2. DOXORUBICIN HCL [Suspect]
     Active Substance: DOXORUBICIN HYDROCHLORIDE
     Indication: ACUTE LYMPHOCYTIC LEUKAEMIA
     Dosage: 32.5 MG, DAY 1, 8, 15 DELAYED INTENSIFICATION
     Route: 042
     Dates: start: 20190917
  3. INCB018424 [Suspect]
     Active Substance: RUXOLITINIB
     Indication: ACUTE LYMPHOCYTIC LEUKAEMIA
     Dosage: TABLET
     Route: 048
     Dates: start: 20190418
  4. DEXAMETHASONE. [Suspect]
     Active Substance: DEXAMETHASONE
     Indication: ACUTE LYMPHOCYTIC LEUKAEMIA
     Dosage: 6.5 MG, 2X/DAY (TABLET) (DAYS 1-7, 15-22 DELAYED INTENSIFICATION)
     Route: 048
     Dates: start: 20190917
  5. METHOTREXATE SODIUM. [Suspect]
     Active Substance: METHOTREXATE SODIUM
     Indication: ACUTE LYMPHOCYTIC LEUKAEMIA
     Dosage: 15 MG,  DAY 1 DELAYED INTENSIFICATION
     Route: 037
     Dates: start: 20190917
  6. INCB018424 [Suspect]
     Active Substance: RUXOLITINIB
     Dosage: 65 MG (TABLET), DAYS 1-14 DELAYED INTENSIFICATION
     Route: 048
     Dates: start: 20190917
  7. VINCRISTINE SULFATE. [Suspect]
     Active Substance: VINCRISTINE SULFATE
     Indication: ACUTE LYMPHOCYTIC LEUKAEMIA
     Dosage: 1.95 MG, DAY 1, 8, 15
     Route: 042
     Dates: start: 20190917

REACTIONS (3)
  - Pharyngitis [Recovered/Resolved]
  - Hyperglycaemia [Recovered/Resolved]
  - Mucosal inflammation [Recovered/Resolved]

NARRATIVE: CASE EVENT DATE: 20190928
